FAERS Safety Report 8416652-5 (Version None)
Quarter: 2012Q2

REPORT INFORMATION
  Report Type: 
  Country: None (occurrence: None)
  Receive Date: 20120606
  Receipt Date: 20120531
  Transmission Date: 20120825
  Serious: Yes (Hospitalization)
  Sender: FDA-Public Use
  Company Number: GR-ABBOTT-12P-066-0941172-00

PATIENT
  Sex: Male

DRUGS (1)
  1. CLARITHROMYCIN [Suspect]
     Indication: PYREXIA
     Dosage: 250MG/5ML, ONCE IN 12HRS; 3-4 DOSE TOTAL
     Route: 048
     Dates: start: 20120527, end: 20120529

REACTIONS (3)
  - DIARRHOEA [None]
  - APHTHOUS STOMATITIS [None]
  - VOMITING [None]
